FAERS Safety Report 7721701-3 (Version None)
Quarter: 2011Q3

REPORT INFORMATION
  Report Type: 
  Country: None (occurrence: None)
  Receive Date: 20110831
  Receipt Date: 20110823
  Transmission Date: 20111222
  Serious: Yes (Other)
  Sender: FDA-Public Use
  Company Number: FR-GLAXOSMITHKLINE-B0741531A

PATIENT
  Sex: Female

DRUGS (1)
  1. PAROXETINE HCL [Suspect]
     Indication: DEPRESSION
     Dosage: 20MG UNKNOWN
     Route: 048
     Dates: start: 20050101, end: 20081001

REACTIONS (1)
  - BLEPHAROSPASM [None]
